FAERS Safety Report 7183085-1 (Version None)
Quarter: 2010Q4

REPORT INFORMATION
  Report Type: 
  Country: None (occurrence: None)
  Receive Date: 20101222
  Receipt Date: 20100917
  Transmission Date: 20110411
  Serious: No
  Sender: FDA-Public Use
  Company Number: A0883239A

PATIENT
  Sex: Female

DRUGS (2)
  1. RYTHMOL [Suspect]
     Route: 048
  2. UNKNOWN [Concomitant]

REACTIONS (2)
  - HYPERSENSITIVITY [None]
  - VOMITING [None]
